FAERS Safety Report 20659860 (Version 1)
Quarter: 2022Q1

REPORT INFORMATION
  Report Type: Spontaneous
  Country: CA (occurrence: None)
  Receive Date: 20220331
  Receipt Date: 20220331
  Transmission Date: 20220424
  Serious: Yes (Other)
  Sender: FDA-Public Use
  Company Number: CA-ROCHE-3061467

PATIENT
  Age: 79 Year
  Sex: Female

DRUGS (8)
  1. RITUXIMAB [Suspect]
     Active Substance: RITUXIMAB
     Indication: Microscopic polyangiitis
     Route: 065
  2. RITUXIMAB [Suspect]
     Active Substance: RITUXIMAB
     Indication: Granulomatosis with polyangiitis
  3. RITUXIMAB [Suspect]
     Active Substance: RITUXIMAB
     Indication: Microscopic polyangiitis
     Route: 041
  4. RITUXIMAB [Suspect]
     Active Substance: RITUXIMAB
     Indication: Granulomatosis with polyangiitis
  5. AMLODIPINE [Concomitant]
     Active Substance: AMLODIPINE BESYLATE
  6. BISOPROLOL [Concomitant]
     Active Substance: BISOPROLOL
     Route: 048
  7. DAPSONE [Concomitant]
     Active Substance: DAPSONE
  8. NAPROXEN [Concomitant]
     Active Substance: NAPROXEN

REACTIONS (8)
  - Antineutrophil cytoplasmic antibody positive [Unknown]
  - Aortitis [Unknown]
  - Deafness [Unknown]
  - Lung neoplasm malignant [Unknown]
  - Off label use [Unknown]
  - Otitis media [Unknown]
  - Pneumonitis [Unknown]
  - Sinusitis [Unknown]
